FAERS Safety Report 10111489 (Version 1)
Quarter: 2014Q2

REPORT INFORMATION
  Report Type: Spontaneous
  Country: US (occurrence: US)
  Receive Date: 20140425
  Receipt Date: 20140425
  Transmission Date: 20141212
  Serious: No
  Sender: FDA-Public Use
  Company Number: US-009507513-1404USA009891

PATIENT
  Age: 75 Year
  Sex: Female

DRUGS (1)
  1. JANUMET [Suspect]
     Indication: BLOOD GLUCOSE DECREASED
     Dosage: UNK
     Route: 048
     Dates: start: 201401, end: 2014

REACTIONS (1)
  - Blood glucose increased [Unknown]
